FAERS Safety Report 5600791-8 (Version None)
Quarter: 2008Q1

REPORT INFORMATION
  Report Type: 
  Country: None (occurrence: None)
  Receive Date: 20080123
  Receipt Date: 20080111
  Transmission Date: 20080703
  Serious: Yes (Other)
  Sender: FDA-Public Use
  Company Number: FR-PFIZER INC-2007106244

PATIENT
  Sex: Female
  Weight: 71 kg

DRUGS (8)
  1. LYRICA [Suspect]
     Indication: NEURALGIA
     Route: 048
     Dates: start: 20070612, end: 20071215
  2. TRAMADOL HCL [Suspect]
     Indication: PAIN
     Route: 048
     Dates: start: 20071127, end: 20071214
  3. IRBESARTAN [Concomitant]
     Route: 048
  4. CALCIUM CARBONATE/COLECALCIFEROL [Concomitant]
     Route: 048
  5. PLAVIX [Concomitant]
     Route: 048
  6. LANTUS [Concomitant]
     Route: 058
  7. FORLAX [Concomitant]
     Route: 048
  8. STRONTIUM RANELATE [Concomitant]
     Route: 048

REACTIONS (3)
  - BLADDER DISTENSION [None]
  - CONSTIPATION [None]
  - URINARY RETENTION [None]
